FAERS Safety Report 8475560-4 (Version None)
Quarter: 2012Q2

REPORT INFORMATION
  Report Type: 
  Country: None (occurrence: None)
  Receive Date: 20120628
  Receipt Date: 20120623
  Transmission Date: 20120825
  Serious: Yes (Disabling)
  Sender: FDA-Public Use
  Company Number: US-BAYER-2012-063089

PATIENT

DRUGS (3)
  1. ALEVE (CAPLET) [Suspect]
     Indication: HEADACHE
     Route: 048
  2. TYLENOL (CAPLET) [Concomitant]
     Indication: HEADACHE
  3. IMITREX [Concomitant]
     Indication: HEADACHE

REACTIONS (1)
  - MIGRAINE [None]
